FAERS Safety Report 9410838 (Version 2)
Quarter: 2013Q3

REPORT INFORMATION
  Report Type: Report from Study
  Country: US (occurrence: US)
  Receive Date: 20130719
  Receipt Date: 20130726
  Transmission Date: 20140515
  Serious: Yes (Other)
  Sender: FDA-Public Use
  Company Number: US-ABBOTT-13P-163-1119011-00

PATIENT
  Age: 39 Year
  Sex: Female
  Weight: 54.48 kg

DRUGS (15)
  1. HUMIRA [Suspect]
     Indication: PSORIATIC ARTHROPATHY
     Dates: start: 20130131, end: 20130702
  2. HUMIRA [Suspect]
     Indication: PSORIASIS
  3. ASACOL [Concomitant]
  4. LIALDA [Concomitant]
     Indication: COLITIS ULCERATIVE
  5. LIALDA [Concomitant]
     Dates: start: 20130703
  6. VYVANSE [Concomitant]
  7. VYVANSE [Concomitant]
  8. TEMAZEPAM [Concomitant]
     Indication: INSOMNIA
     Dosage: 30 MG AT BEDTIME
  9. TOPIRAMATE [Concomitant]
     Indication: INSOMNIA
     Dosage: 2 - 100 MG AT BEDTIME
  10. TIZANIDINE [Concomitant]
     Indication: CYSTITIS
     Dosage: 3 - 2MG TABLETS TWICE DAILY AS NEEDED
  11. CYMBALTA [Concomitant]
     Indication: PRODUCT USED FOR UNKNOWN INDICATION
  12. ELMIRON [Concomitant]
     Indication: BLADDER DISORDER
  13. MIRENA [Concomitant]
     Indication: PRODUCT USED FOR UNKNOWN INDICATION
  14. WELLBUTRIN [Concomitant]
     Indication: SMOKING CESSATION THERAPY
  15. WELLBUTRIN [Concomitant]
     Indication: AFFECTIVE DISORDER

REACTIONS (34)
  - Colour blindness acquired [Unknown]
  - Visual field defect [Unknown]
  - Visual impairment [Unknown]
  - Headache [Unknown]
  - Migraine [Unknown]
  - Sinus disorder [Unknown]
  - Sinusitis [Unknown]
  - Bronchitis [Unknown]
  - Eye disorder [Unknown]
  - Feeling abnormal [Not Recovered/Not Resolved]
  - Muscle spasms [Not Recovered/Not Resolved]
  - Breast tenderness [Not Recovered/Not Resolved]
  - Vaginal haemorrhage [Not Recovered/Not Resolved]
  - Injection site bruising [Not Recovered/Not Resolved]
  - Injection site mass [Not Recovered/Not Resolved]
  - Fatigue [Recovering/Resolving]
  - Colitis ulcerative [Not Recovered/Not Resolved]
  - Wound [Not Recovered/Not Resolved]
  - Breast discharge [Not Recovered/Not Resolved]
  - Endometriosis [Not Recovered/Not Resolved]
  - Drug effect decreased [Not Recovered/Not Resolved]
  - Sinus polyp [Not Recovered/Not Resolved]
  - Nasal mucosal hypertrophy [Not Recovered/Not Resolved]
  - Stress [Unknown]
  - Sinusitis [Recovering/Resolving]
  - Drug dose omission [Not Recovered/Not Resolved]
  - Pain [Not Recovered/Not Resolved]
  - Oedema peripheral [Not Recovered/Not Resolved]
  - Rash papular [Not Recovered/Not Resolved]
  - Pain of skin [Not Recovered/Not Resolved]
  - Chest pain [Not Recovered/Not Resolved]
  - Arthralgia [Not Recovered/Not Resolved]
  - Joint range of motion decreased [Not Recovered/Not Resolved]
  - Hypersomnia [Recovering/Resolving]
